FAERS Safety Report 7433150-6 (Version None)
Quarter: 2011Q2

REPORT INFORMATION
  Report Type: 
  Country: None (occurrence: None)
  Receive Date: 20110415
  Receipt Date: 20110405
  Transmission Date: 20111010
  Serious: Yes (Other)
  Sender: FDA-Public Use
  Company Number: 2011SP016093

PATIENT
  Sex: Female

DRUGS (2)
  1. MIRALAX [Suspect]
     Indication: CONSTIPATION
     Dosage: (17 GM) PO; PO
     Route: 048
     Dates: start: 20110403
  2. MIRALAX [Suspect]
     Indication: CONSTIPATION
     Dosage: (17 GM) PO; PO
     Route: 048
     Dates: start: 20110404

REACTIONS (2)
  - EYE SWELLING [None]
  - PHARYNGEAL OEDEMA [None]
